FAERS Safety Report 4752874-2 (Version None)
Quarter: 2005Q3

REPORT INFORMATION
  Report Type: 
  Country: None (occurrence: None)
  Receive Date: 20050714
  Receipt Date: 20040608
  Transmission Date: 20060218
  Serious: Yes (Life-Threatening, Hospitalization)
  Sender: FDA-Public Use
  Company Number: 200412424US

PATIENT
  Age: 44 Year
  Sex: Female
  Weight: 86.6 kg

DRUGS (17)
  1. TAXOTERE [Suspect]
     Indication: BREAST CANCER
     Dosage: 148 MG Q2W IV
     Route: 042
     Dates: start: 20040301, end: 20040329
  2. GRANISETRON [Concomitant]
  3. MUSCLE RELAXER [Concomitant]
  4. HORMONE REPLACEMENT THERAPY [Concomitant]
  5. OXYCODONE [Concomitant]
  6. LANSOPRAZOLE [Concomitant]
  7. TEMAZEPAM [Concomitant]
  8. RIZATRIPTAN [Concomitant]
  9. ZOLMITRIPTAN [Concomitant]
  10. OXYCODONE [Concomitant]
  11. TIZANIDINE HCL [Concomitant]
  12. DOXORUBICIN [Concomitant]
  13. CYCLOPHOSPHAMIDE [Concomitant]
  14. EMEND [Concomitant]
  15. KYTRIL [Concomitant]
  16. DECADRON [Concomitant]
  17. PEPCID [Concomitant]

REACTIONS (8)
  - ABDOMINAL PAIN [None]
  - ABDOMINAL PAIN UPPER [None]
  - CHEST PAIN [None]
  - CHEST WALL PAIN [None]
  - HEART RATE DECREASED [None]
  - NAUSEA [None]
  - SINUS BRADYCARDIA [None]
  - VERTIGO [None]
